FAERS Safety Report 6383277-5 (Version None)
Quarter: 2009Q3

REPORT INFORMATION
  Report Type: 
  Country: None (occurrence: None)
  Receive Date: 20090929
  Receipt Date: 20090918
  Transmission Date: 20100115
  Serious: Yes (Hospitalization)
  Sender: FDA-Public Use
  Company Number: 2009AP003816

PATIENT
  Age: 55 Year
  Sex: Female

DRUGS (11)
  1. ALENDRONATE SODIUM [Suspect]
     Indication: PROPHYLAXIS
     Dosage: 1600 MG;
  2. REVLIMID [Suspect]
     Indication: MULTIPLE MYELOMA
     Dosage: 25 MG; QOD PO, 25 MG; CAP; PO;, 25 MG; CAP; PO; QOD, 15 MG; QOD, 10 MG; QD
     Route: 048
     Dates: start: 20090720, end: 20090803
  3. AMITRIPTYLINE HYDROCHLORIDE [Concomitant]
  4. ASPIRIN [Concomitant]
  5. DEXAMETHASONE TAB [Concomitant]
  6. METOCLOPRAMIDE [Concomitant]
  7. OMEPRAZOLE [Concomitant]
  8. BUDESONIDE [Concomitant]
  9. FORMOTEROL FUMARATE (FORMOTEROL FUMARATE) [Concomitant]
  10. TRAMADOL HCL [Concomitant]
  11. SALBUTAMOL SULFATE (SALBUTAMOL SULFATE) [Concomitant]

REACTIONS (5)
  - ASPARTATE AMINOTRANSFERASE INCREASED [None]
  - BLOOD ALKALINE PHOSPHATASE INCREASED [None]
  - DEHYDRATION [None]
  - HYPOCALCAEMIA [None]
  - RENAL FAILURE ACUTE [None]
